FAERS Safety Report 6246400-9 (Version None)
Quarter: 2009Q2

REPORT INFORMATION
  Report Type: 
  Country: None (occurrence: None)
  Receive Date: 20090624
  Receipt Date: 20090624
  Transmission Date: 20091009
  Serious: No
  Sender: FDA-Public Use
  Company Number: None

PATIENT
  Age: 66 Year
  Sex: Female
  Weight: 70.7611 kg

DRUGS (1)
  1. IPRATROPIUM BROMIDE [Suspect]
     Indication: POSTNASAL DRIP
     Dosage: USE 2 SPRAYS NASALLY TWICE DAILY NASAL
     Route: 045
     Dates: start: 20090525, end: 20090611

REACTIONS (1)
  - ANOSMIA [None]
